FAERS Safety Report 14015989 (Version 1)
Quarter: 2017Q3

REPORT INFORMATION
  Report Type: Spontaneous
  Country: US (occurrence: None)
  Receive Date: 20170927
  Receipt Date: 20170927
  Transmission Date: 20171128
  Serious: No
  Sender: FDA-Public Use
  Company Number: None

PATIENT
  Age: 61 Year
  Sex: Female
  Weight: 68.04 kg

DRUGS (26)
  1. ZESTRIL [Concomitant]
     Active Substance: LISINOPRIL
  2. TRAZODONE [Concomitant]
     Active Substance: TRAZODONE HYDROCHLORIDE
  3. ECHINACEA [Concomitant]
     Active Substance: ECHINACEA, UNSPECIFIED
  4. ALEVE [Concomitant]
     Active Substance: NAPROXEN SODIUM
  5. ACAMPROSTATE CALCIUM [Concomitant]
  6. THIAMIN [Concomitant]
     Active Substance: THIAMINE
  7. SINGULAIR [Concomitant]
     Active Substance: MONTELUKAST SODIUM
  8. ACETAMINOPHEN. [Concomitant]
     Active Substance: ACETAMINOPHEN
  9. AMBIEN [Concomitant]
     Active Substance: ZOLPIDEM TARTRATE
  10. H.B.P. MEDS [Concomitant]
  11. GABAPENTIN. [Concomitant]
     Active Substance: GABAPENTIN
  12. POTASSIUM [Concomitant]
     Active Substance: POTASSIUM
  13. IVON [Concomitant]
  14. EX STRENGNTH ACETAMINOPHEN [Concomitant]
  15. DEPAKOTE [Concomitant]
     Active Substance: DIVALPROEX SODIUM
  16. METOPROLOL. [Concomitant]
     Active Substance: METOPROLOL
  17. CAMPARAL [Concomitant]
  18. NORVASC [Concomitant]
     Active Substance: AMLODIPINE BESYLATE
  19. FOLIC ACID. [Concomitant]
     Active Substance: FOLIC ACID
  20. GINSENG COMPLEX [Concomitant]
  21. 5HTP [Concomitant]
  22. NEURONTIN [Concomitant]
     Active Substance: GABAPENTIN
  23. LATUDA [Suspect]
     Active Substance: LURASIDONE HYDROCHLORIDE
     Indication: SCHIZOPHRENIA
     Route: 048
     Dates: start: 20170601, end: 20170622
  24. KLONOPIN [Concomitant]
     Active Substance: CLONAZEPAM
  25. SUPLEMENTS [Concomitant]
  26. MAGNESIUM [Concomitant]
     Active Substance: MAGNESIUM

REACTIONS (9)
  - Thinking abnormal [None]
  - Malaise [None]
  - Withdrawal syndrome [None]
  - Dizziness [None]
  - Insomnia [None]
  - Vertigo [None]
  - Educational problem [None]
  - Hallucination [None]
  - Balance disorder [None]

NARRATIVE: CASE EVENT DATE: 20170622
